FAERS Safety Report 4799835-5 (Version None)
Quarter: 2005Q4

REPORT INFORMATION
  Report Type: 
  Country: None (occurrence: None)
  Receive Date: 20051013
  Receipt Date: 20050926
  Transmission Date: 20060501
  Serious: Yes (Death)
  Sender: FDA-Public Use
  Company Number: JP_050807278

PATIENT
  Age: 69 Year
  Sex: Male
  Weight: 48 kg

DRUGS (3)
  1. GEMZAR [Suspect]
     Indication: NON-SMALL CELL LUNG CANCER RECURRENT
     Dosage: 1400 MG EVERY OTHER WEEK
     Dates: start: 20050420, end: 20050520
  2. TAXOTERE [Concomitant]
  3. DECADRON /CAN/ (DEXAMETHASONE) [Concomitant]

REACTIONS (5)
  - BLOOD PH DECREASED [None]
  - BLOOD PRESSURE ABNORMAL [None]
  - CARBON DIOXIDE INCREASED [None]
  - PNEUMONITIS [None]
  - PO2 DECREASED [None]
